FAERS Safety Report 9147453 (Version 2)
Quarter: 2013Q2

REPORT INFORMATION
  Report Type: Spontaneous
  Country: KR (occurrence: None)
  Receive Date: 20130220
  Receipt Date: 20130508
  Transmission Date: 20140414
  Serious: Yes (Death)
  Sender: FDA-Public Use
  Company Number: JP-2013-10293

PATIENT
  Age: 68 Year
  Sex: Male

DRUGS (9)
  1. OPC-13013 [Suspect]
     Indication: CORONARY ARTERY DISEASE
     Route: 048
     Dates: start: 20101025, end: 20110127
  2. OPC-13013 [Suspect]
     Indication: CORONARY ARTERIAL STENT INSERTION
     Route: 048
     Dates: start: 20101025, end: 20110127
  3. ASPIRIN (ACETYLSALICYLIC ACID) [Suspect]
     Indication: CORONARY ARTERY DISEASE
     Route: 048
     Dates: start: 20110117
  4. ASPIRIN (ACETYLSALICYLIC ACID) [Suspect]
     Indication: CORONARY ARTERIAL STENT INSERTION
     Route: 048
     Dates: start: 20110117
  5. CLOPIDOGREL [Suspect]
     Indication: CORONARY ARTERY DISEASE
     Route: 048
  6. CLOPIDOGREL [Suspect]
     Indication: CORONARY ARTERIAL STENT INSERTION
     Route: 048
  7. AMIODARONE HYDROCHLORIDE [Suspect]
     Route: 048
  8. CANDESARTAN CILEXETIL [Suspect]
     Route: 048
     Dates: start: 20110117
  9. CARVEDILOL [Suspect]
     Route: 048
     Dates: start: 20110117

REACTIONS (14)
  - Acute respiratory distress syndrome [None]
  - Dizziness [None]
  - Chest pain [None]
  - Hypovolaemic shock [None]
  - Renal failure acute [None]
  - Acute pulmonary oedema [None]
  - Pneumothorax [None]
  - Septic shock [None]
  - Bile duct obstruction [None]
  - Hypoxia [None]
  - Cardiac disorder [None]
  - Metabolic acidosis [None]
  - Heart rate decreased [None]
  - Pneumonia aspiration [None]
